FAERS Safety Report 8854359 (Version 2)
Quarter: 2013Q1

REPORT INFORMATION
  Report Type: Spontaneous
  Country: US (occurrence: US)
  Receive Date: 20121023
  Receipt Date: 20130107
  Transmission Date: 20140127
  Serious: Yes (Hospitalization)
  Sender: FDA-Public Use
  Company Number: US-ASTRAZENECA-2012SE60338

PATIENT
  Age: 56 Year
  Sex: Female

DRUGS (1)
  1. SEROQUEL [Suspect]
     Route: 048

REACTIONS (5)
  - Renal failure [Unknown]
  - Drug dose omission [Unknown]
  - Drug withdrawal syndrome [Unknown]
  - Oropharyngeal pain [Unknown]
  - Drug hypersensitivity [Unknown]
